FAERS Safety Report 16865288 (Version 2)
Quarter: 2019Q4

REPORT INFORMATION
  Report Type: Report from Study
  Country: US (occurrence: US)
  Receive Date: 20190930
  Receipt Date: 20191104
  Transmission Date: 20200122
  Serious: Yes (Death, Other)
  Sender: FDA-Public Use
  Company Number: US-TAKEDA-2019TUS054319

PATIENT
  Age: 81 Year
  Sex: Male

DRUGS (1)
  1. DEXLANSOPRAZOLE [Suspect]
     Active Substance: DEXLANSOPRAZOLE
     Indication: GASTRIC DISORDER
     Dosage: UNK
     Route: 065

REACTIONS (4)
  - Fall [Unknown]
  - Off label use [Unknown]
  - Coronary artery disease [Fatal]
  - Upper limb fracture [Unknown]
